FAERS Safety Report 5366325-0 (Version None)
Quarter: 2007Q2

REPORT INFORMATION
  Report Type: 
  Country: None (occurrence: None)
  Receive Date: 20070620
  Receipt Date: 20070620
  Transmission Date: 20071010
  Serious: Yes (Death)
  Sender: FDA-Public Use
  Company Number: None

PATIENT
  Sex: Female

DRUGS (12)
  1. REVLIMID [Suspect]
     Indication: MYELODYSPLASTIC SYNDROME
     Dosage: 5MG DAILY PO
     Route: 048
  2. REVLIMID [Concomitant]
  3. FUROSEMIDE [Concomitant]
  4. OMEPRAZOLE [Concomitant]
  5. DILTIAZEM [Concomitant]
  6. HYDROCHLOROTHIAZIDE [Concomitant]
  7. GLIPIZIDE [Concomitant]
  8. COZAAR [Concomitant]
  9. PROCRIT [Concomitant]
  10. TERAZOSIN HCL [Concomitant]
  11. LOVASTATIN [Concomitant]
  12. ALLOPURINOL [Concomitant]

REACTIONS (3)
  - HYPOGLYCAEMIA [None]
  - MENTAL STATUS CHANGES [None]
  - PANCYTOPENIA [None]
